FAERS Safety Report 25862609 (Version 1)
Quarter: 2025Q3

REPORT INFORMATION
  Report Type: Report from Study
  Country: CA (occurrence: CA)
  Receive Date: 20250930
  Receipt Date: 20250930
  Transmission Date: 20251020
  Serious: No
  Sender: ASTELLAS
  Company Number: CA-ASTELLAS-2025-AER-052406

PATIENT
  Age: 70 Year
  Sex: Female

DRUGS (1)
  1. FEZOLINETANT [Suspect]
     Active Substance: FEZOLINETANT
     Indication: Menopause
     Route: 048

REACTIONS (2)
  - Liver disorder [Unknown]
  - Off label use [Unknown]
